FAERS Safety Report 9819468 (Version 1)
Quarter: 2014Q1

REPORT INFORMATION
  Report Type: Spontaneous
  Country: CN (occurrence: None)
  Receive Date: 20140113
  Receipt Date: 20140113
  Transmission Date: 20141002
  Serious: Yes (Death, Other)
  Sender: FDA-Public Use
  Company Number: CN-JNJFOC-20140101564

PATIENT
  Age: 49 Year
  Sex: 0

DRUGS (6)
  1. DECITABINE [Suspect]
     Indication: ACUTE MYELOID LEUKAEMIA
     Dosage: 20 MG/M2, IN 1 DAY, INTRAVENOUS
     Route: 042
  2. DECITABINE [Suspect]
     Indication: MYELODYSPLASTIC SYNDROME
     Dosage: 20 MG/M2, IN 1 DAY, INTRAVENOUS
     Route: 042
  3. BUSULFAN [Suspect]
     Indication: MYELODYSPLASTIC SYNDROME
     Dosage: UNKNOWN
  4. BUSULFAN [Suspect]
     Indication: MYELODYSPLASTIC SYNDROME
     Dosage: UNKNOWN
  5. CYCLOPHOSPHAMIDE [Suspect]
     Indication: MYELODYSPLASTIC SYNDROME
     Dosage: UNKNOWN
  6. CYCLOPHOSPHAMIDE [Suspect]
     Indication: ACUTE MYELOID LEUKAEMIA
     Dosage: UNKNOWN

REACTIONS (7)
  - Stem cell transplant [None]
  - Haematotoxicity [None]
  - Platelet count decreased [None]
  - Neutrophil count decreased [None]
  - Acute myeloid leukaemia recurrent [None]
  - Disease recurrence [None]
  - Pneumonia [None]
